FAERS Safety Report 9482525 (Version 2)
Quarter: 2013Q3

REPORT INFORMATION
  Report Type: Spontaneous
  Country: US (occurrence: US)
  Receive Date: 20130828
  Receipt Date: 20130906
  Transmission Date: 20140515
  Serious: Yes (Hospitalization, Other)
  Sender: FDA-Public Use
  Company Number: US-PURDUE-USA-2013-0105816

PATIENT
  Sex: Male

DRUGS (2)
  1. COLACE [Suspect]
     Indication: PRODUCT USED FOR UNKNOWN INDICATION
     Dosage: 50 MG, 1 TABLET 3-4 TIMES WEEKLY
     Route: 048
     Dates: start: 2000
  2. COLACE [Suspect]
     Dosage: 100 MG, DAILY
     Route: 048

REACTIONS (3)
  - Myocardial infarction [Recovered/Resolved]
  - Constipation [Unknown]
  - Drug ineffective [Not Recovered/Not Resolved]
